FAERS Safety Report 5195512-X (Version None)
Quarter: 2007Q1

REPORT INFORMATION
  Report Type: 
  Country: None (occurrence: None)
  Receive Date: 20070102
  Receipt Date: 20061222
  Transmission Date: 20070707
  Serious: Yes (Other)
  Sender: FDA-Public Use
  Company Number: JP-JNJFOC-20061204857

PATIENT
  Age: 75 Year
  Sex: Male

DRUGS (4)
  1. ITRIZOLE [Suspect]
     Dosage: PULSE THERAPY
     Route: 048
  2. ITRIZOLE [Suspect]
     Indication: NAIL TINEA
     Route: 048
  3. LOXONIN [Concomitant]
     Indication: DRUG USE FOR UNKNOWN INDICATION
     Route: 065
  4. MUCOSTA [Concomitant]
     Indication: DRUG USE FOR UNKNOWN INDICATION
     Route: 065

REACTIONS (1)
  - ANAEMIA [None]
